FAERS Safety Report 4947673-2 (Version None)
Quarter: 2006Q1

REPORT INFORMATION
  Report Type: 
  Country: None (occurrence: None)
  Receive Date: 20060314
  Receipt Date: 20060303
  Transmission Date: 20060701
  Serious: Yes (Hospitalization, Other)
  Sender: FDA-Public Use
  Company Number: 2006032554

PATIENT
  Sex: Female

DRUGS (4)
  1. NEURONTIN [Suspect]
     Indication: CONVULSION
     Dosage: 600 MG, FOUR TO FIVE TIMES DAILY)
  2. DILANTIN [Suspect]
     Indication: CONVULSION
     Dosage: 400 MG (200 MG, 2 IN 1 D)
  3. CELEXA [Concomitant]
  4. VICODIN [Concomitant]

REACTIONS (5)
  - ANTICONVULSANT DRUG LEVEL DECREASED [None]
  - BLOOD GLUCOSE INCREASED [None]
  - CONVULSION [None]
  - GRAND MAL CONVULSION [None]
  - WHITE BLOOD CELL COUNT INCREASED [None]
